FAERS Safety Report 9339368 (Version 2)
Quarter: 2013Q3

REPORT INFORMATION
  Report Type: Spontaneous
  Country: JP (occurrence: JP)
  Receive Date: 20130610
  Receipt Date: 20130705
  Transmission Date: 20140515
  Serious: No
  Sender: FDA-Public Use
  Company Number: JP-UCBSA-088049

PATIENT
  Age: 37 Year
  Sex: Female
  Weight: 51.9 kg

DRUGS (3)
  1. CIMZIA [Suspect]
     Indication: RHEUMATOID ARTHRITIS
     Dosage: 200MG SYRINGE; DOSE: 400 MG
     Route: 058
     Dates: start: 20130513, end: 20130513
  2. SAIREITO [Suspect]
     Route: 048
     Dates: start: 20130521, end: 20130524
  3. CELECOX [Concomitant]
     Indication: RHEUMATOID ARTHRITIS
     Dosage: DAILY DOSE: 400  MG
     Route: 048

REACTIONS (1)
  - Rash [Recovered/Resolved]
